FAERS Safety Report 5956452-9 (Version None)
Quarter: 2008Q4

REPORT INFORMATION
  Report Type: 
  Country: None (occurrence: None)
  Receive Date: 20081118
  Receipt Date: 20081107
  Transmission Date: 20090506
  Serious: Yes (Death, Hospitalization)
  Sender: FDA-Public Use
  Company Number: CH-ELI_LILLY_AND_COMPANY-CH200810007550

PATIENT
  Age: 29 Year
  Sex: Female

DRUGS (5)
  1. FLUCTINE [Suspect]
     Indication: DEPRESSION
     Dosage: 60 MG, DAILY (1/D)
     Route: 048
     Dates: end: 20080313
  2. TEMESTA [Concomitant]
     Dosage: 20 MG, UNK
     Dates: start: 20080109, end: 20080109
  3. TEMESTA [Concomitant]
     Dosage: 4.5 MG, DAILY (1/D)
     Route: 048
     Dates: start: 20080213, end: 20080313
  4. TRIMIN [Concomitant]
     Dosage: 20 D/F, UNK
     Dates: start: 20080109, end: 20080109
  5. ALCOHOL [Concomitant]
     Dosage: UNK, UNK
     Dates: start: 20080109, end: 20080109

REACTIONS (3)
  - DEATH [None]
  - DRUG TOXICITY [None]
  - SUICIDE ATTEMPT [None]
